FAERS Safety Report 10342517 (Version 2)
Quarter: 2014Q3

REPORT INFORMATION
  Report Type: Spontaneous
  Country: CH (occurrence: CH)
  Receive Date: 20140725
  Receipt Date: 20140725
  Transmission Date: 20150326
  Serious: Yes (Other)
  Sender: FDA-Public Use
  Company Number: CH-009507513-1407CHE003319

PATIENT
  Age: 45 Year
  Sex: Female

DRUGS (2)
  1. IMPLANON [Suspect]
     Active Substance: ETONOGESTREL
     Indication: CONTRACEPTION
     Dosage: 1 PER 3 YEARS
     Route: 058
     Dates: start: 2002
  2. GONGJINHYANG SEOL WHITENING INTENSIVE [Concomitant]
     Active Substance: DIACETYL BENZOYL LATHYROL
     Dosage: UNK
     Route: 042

REACTIONS (2)
  - Polycythaemia vera [Not Recovered/Not Resolved]
  - Phlebotomy [Unknown]

NARRATIVE: CASE EVENT DATE: 2011
